FAERS Safety Report 9684001 (Version 1)
Quarter: 2013Q4

REPORT INFORMATION
  Report Type: Spontaneous
  Country: FR (occurrence: FR)
  Receive Date: 20131112
  Receipt Date: 20131112
  Transmission Date: 20140711
  Serious: Yes (Hospitalization)
  Sender: FDA-Public Use
  Company Number: PHHY2013FR126706

PATIENT
  Age: 55 Year
  Sex: Male

DRUGS (15)
  1. MYFORTIC [Suspect]
     Indication: PROPHYLAXIS AGAINST TRANSPLANT REJECTION
     Dosage: 720 MG, QD ENTERIC AND FILM COATED TABLET
     Route: 048
     Dates: start: 20130723, end: 20131003
  2. NEORAL [Suspect]
     Dosage: 120 MG, QD
     Route: 048
     Dates: start: 20130723
  3. LOPRESOR [Suspect]
     Dosage: 200 MG, QD
     Route: 048
     Dates: start: 20130610
  4. TRIATEC [Suspect]
     Dosage: 2.5 MG, QD
     Route: 048
     Dates: start: 20130411, end: 20131010
  5. LASILIX [Suspect]
     Dosage: 1.75 DF, QD
     Route: 048
     Dates: start: 20130527
  6. PENTACARINAT [Suspect]
     Dosage: 1 DF, QW
     Route: 048
     Dates: start: 20130605
  7. EUPANTOL [Suspect]
     Dosage: 40 MG, QD
     Route: 048
     Dates: start: 20130610
  8. SERETIDE DISKUS [Suspect]
     Dosage: 2 PUFFS QD , POWDER FOR INHALATION
     Route: 048
     Dates: start: 20130610
  9. CORDARONE X [Suspect]
     Dosage: 200 MG, 5 TIMES QW
     Route: 048
     Dates: start: 20130723
  10. OFLOCET [Suspect]
     Indication: BACTERIAL INFECTION
     Dosage: 200 MG, QD
     Route: 048
     Dates: start: 20130926, end: 20131003
  11. CALCIPARINE [Suspect]
     Dosage: 0.5 ML, TID
     Route: 058
     Dates: start: 20130926
  12. PREVISCAN [Suspect]
     Dosage: 15 MG, QD
     Route: 048
     Dates: start: 20131001
  13. SPECIAFOLDINE [Concomitant]
     Dosage: 5 MG, QD
  14. KAYEXALATE [Concomitant]
     Dosage: 1 CUP QD
  15. SOLUPRED [Concomitant]
     Dosage: 3 DF, QD

REACTIONS (4)
  - Thrombocytopenic purpura [Recovered/Resolved]
  - Blood blister [Recovered/Resolved]
  - Subcutaneous haematoma [Recovered/Resolved]
  - Thrombocytopenia [Recovered/Resolved]
